FAERS Safety Report 4783132-8 (Version None)
Quarter: 2005Q3

REPORT INFORMATION
  Report Type: 
  Country: None (occurrence: None)
  Receive Date: 20050928
  Receipt Date: 20050928
  Transmission Date: 20060218
  Serious: Yes (Hospitalization)
  Sender: FDA-Public Use
  Company Number: None

PATIENT
  Age: 49 Year
  Sex: Male
  Weight: 70.3075 kg

DRUGS (8)
  1. DECADRON [Suspect]
     Indication: POST PROCEDURAL NAUSEA
     Dosage: 20 MG IVPB OVER 30 MIN X 1 DOSE
     Route: 042
     Dates: start: 20050921
  2. DECADRON [Suspect]
     Indication: POST PROCEDURAL VOMITING
     Dosage: 20 MG IVPB OVER 30 MIN X 1 DOSE
     Route: 042
     Dates: start: 20050921
  3. KYTRIL [Concomitant]
  4. FLUOROURACIL [Concomitant]
  5. LORTAB [Concomitant]
  6. ENALAPRIL [Concomitant]
  7. AVASTIN [Concomitant]
  8. ELOXATIN [Concomitant]

REACTIONS (9)
  - ANXIETY [None]
  - BACK PAIN [None]
  - CHILLS [None]
  - CRYING [None]
  - FLUSHING [None]
  - LACRIMATION INCREASED [None]
  - OCULAR HYPERAEMIA [None]
  - PAIN [None]
  - TETANY [None]
